FAERS Safety Report 17243216 (Version 2)
Quarter: 2020Q3

REPORT INFORMATION
  Report Type: Spontaneous
  Country: US (occurrence: US)
  Receive Date: 20200107
  Receipt Date: 20200924
  Transmission Date: 20201102
  Serious: No
  Sender: FDA-Public Use
  Company Number: US-ASTRAZENECA-2019SF92202

PATIENT
  Age: 90 Year
  Sex: Female
  Weight: 36.29 kg

DRUGS (3)
  1. MOVANTIK [Suspect]
     Active Substance: NALOXEGOL OXALATE
     Indication: CONSTIPATION
     Dosage: 12.5 MG
     Route: 048
     Dates: start: 20191212, end: 20191214
  2. SINEMET [Concomitant]
     Active Substance: CARBIDOPA\LEVODOPA
     Indication: PARKINSON^S DISEASE
  3. MORPHINE [Concomitant]
     Active Substance: MORPHINE
     Indication: SURGERY
     Dates: start: 20191209, end: 20191212

REACTIONS (4)
  - Bowel movement irregularity [Unknown]
  - Intentional product misuse [Unknown]
  - Drug ineffective [Unknown]
  - Inability to afford medication [Unknown]

NARRATIVE: CASE EVENT DATE: 20191212
